FAERS Safety Report 17764400 (Version 2)
Quarter: 2020Q2

REPORT INFORMATION
  Report Type: Spontaneous
  Country: US (occurrence: US)
  Receive Date: 20200511
  Receipt Date: 20200519
  Transmission Date: 20200714
  Serious: Yes (Hospitalization, Other)
  Sender: FDA-Public Use
  Company Number: US-TEVA-2020-US-1232825

PATIENT
  Age: 75 Year
  Sex: Female

DRUGS (1)
  1. BUDESONIDE. [Suspect]
     Active Substance: BUDESONIDE
     Indication: ASTHMA
     Dosage: INHALATION SUSPENSION, USING THE PRODUCT FOR ABOUT A YEAR AND A HALF, STRENGTH: 0.5 MG / 2 ML
     Route: 065
     Dates: start: 2018

REACTIONS (13)
  - Product packaging difficult to open [Unknown]
  - Asthma [Unknown]
  - Adverse reaction [Unknown]
  - Incorrect product administration duration [Unknown]
  - Chest pain [Unknown]
  - Spinal pain [Not Recovered/Not Resolved]
  - Back injury [Not Recovered/Not Resolved]
  - Dyspnoea [Unknown]
  - Intervertebral disc injury [Not Recovered/Not Resolved]
  - Radiculopathy [Not Recovered/Not Resolved]
  - Off label use [Unknown]
  - Liquid product physical issue [Unknown]
  - Chest discomfort [Unknown]

NARRATIVE: CASE EVENT DATE: 2019
